FAERS Safety Report 23428226 (Version 4)
Quarter: 2024Q1

REPORT INFORMATION
  Report Type: Spontaneous
  Country: US (occurrence: US)
  Receive Date: 20240122
  Receipt Date: 20240325
  Transmission Date: 20240409
  Serious: No
  Sender: FDA-Public Use
  Company Number: US-PFIZER INC-202300369781

PATIENT
  Age: 7 Year
  Sex: Male
  Weight: 20.41 kg

DRUGS (5)
  1. OXBRYTA [Suspect]
     Active Substance: VOXELOTOR
     Indication: Sickle cell disease
     Dosage: 300MG ORAL SUSPENSION (2 TABLET) ONCE DAILY
     Route: 048
     Dates: start: 202311
  2. OXBRYTA [Suspect]
     Active Substance: VOXELOTOR
     Indication: Thalassaemia
     Dosage: 300 MG TABS TAKE 2 TABS BY MOUTH ONCE DAILY
     Route: 048
     Dates: start: 20231103
  3. OXBRYTA [Suspect]
     Active Substance: VOXELOTOR
     Indication: Sickle cell disease
  4. PENICILLIN G [Concomitant]
     Active Substance: PENICILLIN G
     Indication: Sickle cell disease
     Dosage: 5 MG, 2X/DAY
  5. HYDROXYUREA [Concomitant]
     Active Substance: HYDROXYUREA
     Dosage: UNK

REACTIONS (6)
  - Increased appetite [Unknown]
  - Energy increased [Unknown]
  - Euphoric mood [Unknown]
  - White blood cell count increased [Unknown]
  - Product prescribing issue [Unknown]
  - Intentional product misuse [Unknown]
